FAERS Safety Report 5444354-6 (Version None)
Quarter: 2007Q3

REPORT INFORMATION
  Report Type: 
  Country: None (occurrence: None)
  Receive Date: 20070904
  Receipt Date: 20070904
  Transmission Date: 20080115
  Serious: Yes (Disabling)
  Sender: FDA-Public Use
  Company Number: None

PATIENT
  Age: 57 Year
  Sex: Male
  Weight: 86.1834 kg

DRUGS (1)
  1. PLAVIX [Suspect]
     Indication: STENT PLACEMENT
     Dosage: 150 MG DAILY PO
     Route: 048
     Dates: start: 20060603, end: 20070815

REACTIONS (3)
  - CONTUSION [None]
  - HAEMORRHAGE [None]
  - IMPAIRED HEALING [None]
